FAERS Safety Report 5115715-X (Version None)
Quarter: 2006Q3

REPORT INFORMATION
  Report Type: 
  Country: None (occurrence: None)
  Receive Date: 20060927
  Receipt Date: 20060809
  Transmission Date: 20061208
  Serious: Yes (Life-Threatening, Hospitalization)
  Sender: FDA-Public Use
  Company Number: GB-GILEAD-2006-0010051

PATIENT
  Sex: Male
  Weight: 28 kg

DRUGS (3)
  1. VIREAD [Suspect]
     Indication: HIV INFECTION
     Route: 048
     Dates: start: 20031027, end: 20060719
  2. KALETRA [Concomitant]
     Indication: HIV INFECTION
     Dates: start: 20030101
  3. DIDANOSINE [Concomitant]
     Indication: HIV INFECTION
     Route: 048
     Dates: start: 20000101

REACTIONS (4)
  - HYPOCALCAEMIA [None]
  - HYPOPHOSPHATAEMIA [None]
  - TETANY [None]
  - URINE ELECTROLYTES INCREASED [None]
